FAERS Safety Report 19221855 (Version 1)
Quarter: 2021Q2

REPORT INFORMATION
  Report Type: Spontaneous
  Country: JP (occurrence: JP)
  Receive Date: 20210505
  Receipt Date: 20210505
  Transmission Date: 20210717
  Serious: Yes (Hospitalization, Other)
  Sender: FDA-Public Use
  Company Number: JP-PFIZER INC-2021467385

PATIENT
  Age: 54 Year
  Sex: Male
  Weight: 54.2 kg

DRUGS (15)
  1. PREDNISOLONE. [Suspect]
     Active Substance: PREDNISOLONE
     Indication: TAKAYASU^S ARTERITIS
     Dosage: 60 MG/DAY
     Dates: start: 201808
  2. PREDNISOLONE. [Suspect]
     Active Substance: PREDNISOLONE
     Dosage: 20 MG
     Dates: start: 201811
  3. TOCILIZUMAB. [Suspect]
     Active Substance: TOCILIZUMAB
     Indication: TAKAYASU^S ARTERITIS
     Dosage: UNK
     Dates: start: 201812
  4. PREDNISOLONE. [Suspect]
     Active Substance: PREDNISOLONE
     Dosage: 30 MG
  5. PREDNISOLONE. [Suspect]
     Active Substance: PREDNISOLONE
     Dosage: 30 MG
  6. PREDNISOLONE. [Suspect]
     Active Substance: PREDNISOLONE
     Dosage: 30 MG
  7. PREDNISOLONE. [Suspect]
     Active Substance: PREDNISOLONE
     Dosage: 20 MG
  8. METHOTREXATE SODIUM. [Suspect]
     Active Substance: METHOTREXATE SODIUM
     Indication: TAKAYASU^S ARTERITIS
     Dosage: 8 MG/WEEK
     Dates: start: 201808, end: 201811
  9. PREDNISOLONE. [Suspect]
     Active Substance: PREDNISOLONE
     Dosage: 50 MG
  10. PREDNISOLONE. [Suspect]
     Active Substance: PREDNISOLONE
     Dosage: 40 MG
  11. PREDNISOLONE. [Suspect]
     Active Substance: PREDNISOLONE
     Dosage: 60 MG, DAILY
  12. PREDNISOLONE. [Suspect]
     Active Substance: PREDNISOLONE
     Dosage: 15 MG
  13. CYCLOSPORIN [Suspect]
     Active Substance: CYCLOSPORINE
     Indication: TAKAYASU^S ARTERITIS
     Dosage: UNK
     Dates: start: 2019
  14. TACROLIMUS. [Suspect]
     Active Substance: TACROLIMUS
     Indication: TAKAYASU^S ARTERITIS
     Dosage: 4 MG/DAY
     Dates: start: 2019
  15. PREDNISOLONE. [Suspect]
     Active Substance: PREDNISOLONE
     Dosage: 40 MG

REACTIONS (2)
  - Off label use [Unknown]
  - Alveolar proteinosis [Recovered/Resolved]

NARRATIVE: CASE EVENT DATE: 201808
